FAERS Safety Report 22141780 (Version 2)
Quarter: 2023Q2

REPORT INFORMATION
  Report Type: Spontaneous
  Country: US (occurrence: US)
  Receive Date: 20230327
  Receipt Date: 20230424
  Transmission Date: 20230722
  Serious: No
  Sender: FDA-Public Use
  Company Number: US-PFIZER INC-PV202300054844

PATIENT
  Age: 68 Year
  Sex: Female
  Weight: 68.934 kg

DRUGS (1)
  1. IBRANCE [Suspect]
     Active Substance: PALBOCICLIB
     Dosage: DAYS 1-21/28
     Route: 048
     Dates: start: 20210624

REACTIONS (6)
  - Neoplasm progression [Unknown]
  - Tumour pain [Unknown]
  - Cough [Unknown]
  - Dehydration [Unknown]
  - Dysuria [Unknown]
  - Type V hyperlipidaemia [Unknown]
